FAERS Safety Report 5743840-9 (Version None)
Quarter: 2008Q2

REPORT INFORMATION
  Report Type: 
  Country: None (occurrence: None)
  Receive Date: 20080519
  Receipt Date: 20080519
  Transmission Date: 20081010
  Serious: Yes (Other)
  Sender: FDA-Public Use
  Company Number: None

PATIENT
  Age: 40 Year
  Sex: Female
  Weight: 56.6996 kg

DRUGS (2)
  1. SINGULAIR [Suspect]
     Indication: MULTIPLE ALLERGIES
     Dosage: 1 TABLET  EVENING/BEDTIME         PO
     Route: 048
     Dates: start: 20070501, end: 20080301
  2. SINGULAIR [Suspect]
     Indication: SNORING
     Dosage: 1 TABLET  EVENING/BEDTIME         PO
     Route: 048
     Dates: start: 20070501, end: 20080301

REACTIONS (5)
  - ABNORMAL BEHAVIOUR [None]
  - AGGRESSION [None]
  - MOOD SWINGS [None]
  - PSYCHOTIC DISORDER [None]
  - SUICIDAL IDEATION [None]
